FAERS Safety Report 9969019 (Version 1)
Quarter: 2014Q1

REPORT INFORMATION
  Report Type: Report from Study
  Country: US (occurrence: US)
  Receive Date: 20140306
  Receipt Date: 20140306
  Transmission Date: 20141002
  Serious: No
  Sender: FDA-Public Use
  Company Number: US-ABBVIE-13P-163-1140104-00

PATIENT
  Age: 42 Year
  Sex: Female

DRUGS (6)
  1. HUMIRA [Suspect]
     Indication: CROHN^S DISEASE
     Dates: start: 201002, end: 201104
  2. HUMIRA [Suspect]
     Dates: start: 20130730, end: 20130730
  3. HUMIRA [Suspect]
     Dates: start: 20130813, end: 20130813
  4. HUMIRA [Suspect]
  5. PREDNISONE [Concomitant]
     Indication: PRODUCT USED FOR UNKNOWN INDICATION
     Dosage: EITHER 10 OR 15MG EVERY DAY
  6. IMURAN [Concomitant]
     Indication: PRODUCT USED FOR UNKNOWN INDICATION
     Dosage: 50MG 2 TABLETS DAILY

REACTIONS (1)
  - Injection site pain [Recovered/Resolved]
